FAERS Safety Report 7216108-1 (Version None)
Quarter: 2011Q1

REPORT INFORMATION
  Report Type: 
  Country: None (occurrence: None)
  Receive Date: 20110107
  Receipt Date: 20110105
  Transmission Date: 20110831
  Serious: Yes (Hospitalization, Other)
  Sender: FDA-Public Use
  Company Number: US-AMGEN-USASP2011000683

PATIENT

DRUGS (5)
  1. RITUXAN [Concomitant]
  2. BENDAMUSTINE [Concomitant]
  3. NEULASTA [Suspect]
     Indication: NEUTROPENIA
  4. NEUPOGEN [Suspect]
     Indication: NEUTROPENIA
  5. CYTOXAN [Concomitant]

REACTIONS (8)
  - PRODUCTIVE COUGH [None]
  - PNEUMONIA [None]
  - GASTROINTESTINAL HAEMORRHAGE [None]
  - RESPIRATORY DISTRESS [None]
  - DEEP VEIN THROMBOSIS [None]
  - ESCHERICHIA INFECTION [None]
  - INCREASED UPPER AIRWAY SECRETION [None]
  - COUGH [None]
